FAERS Safety Report 14807639 (Version 2)
Quarter: 2018Q2

REPORT INFORMATION
  Report Type: Spontaneous
  Country: US (occurrence: BE)
  Receive Date: 20180425
  Receipt Date: 20180501
  Transmission Date: 20180711
  Serious: Yes (Hospitalization)
  Sender: FDA-Public Use
  Company Number: US-TAKEDA-2018TUS011868

PATIENT
  Sex: Male

DRUGS (2)
  1. OMEPRAZOLE. [Concomitant]
     Active Substance: OMEPRAZOLE
     Dosage: UNK
  2. ENTYVIO [Suspect]
     Active Substance: VEDOLIZUMAB
     Indication: CROHN^S DISEASE
     Dosage: UNK
     Route: 065
     Dates: start: 2018

REACTIONS (6)
  - Paraesthesia [Unknown]
  - Hyperhidrosis [Unknown]
  - Hypomagnesaemia [Unknown]
  - Dizziness [Unknown]
  - Malaise [Unknown]
  - Calcium ionised decreased [Unknown]
